FAERS Safety Report 6131312-1 (Version None)
Quarter: 2009Q1

REPORT INFORMATION
  Report Type: 
  Country: None (occurrence: None)
  Receive Date: 20090325
  Receipt Date: 20080514
  Transmission Date: 20090719
  Serious: No
  Sender: FDA-Public Use
  Company Number: US-BRISTOL-MYERS SQUIBB COMPANY-14110894

PATIENT
  Age: 59 Year
  Sex: Female

DRUGS (2)
  1. ERBITUX [Suspect]
     Indication: COLORECTAL CANCER
     Dosage: 8 INFUSION ON WEEKLY BASIS. CETUXIMAB ON 21MAR2008, 28MAR2008 AND WAS DISCONTINUED ON 04APR2008
     Route: 042
     Dates: start: 20080201
  2. IRINOTECAN HCL [Concomitant]

REACTIONS (2)
  - CONJUNCTIVITIS [None]
  - RASH [None]
